FAERS Safety Report 5056994-7 (Version None)
Quarter: 2006Q2

REPORT INFORMATION
  Report Type: 
  Country: None (occurrence: None)
  Receive Date: 20060622
  Receipt Date: 20051011
  Transmission Date: 20061013
  Serious: Yes (Hospitalization)
  Sender: FDA-Public Use
  Company Number: US-JNJFOC-20050705862

PATIENT
  Age: 51 Year
  Sex: Male
  Weight: 106.1417 kg

DRUGS (14)
  1. DURAGESIC-100 [Suspect]
     Indication: PAIN
     Dosage: 50 UG/HR. TRANSDERMAL
     Route: 062
     Dates: start: 20050421, end: 20050511
  2. PEGINTERFERON ALFA-2B (POWDER) [Concomitant]
  3. RIBAVIRIN [Concomitant]
  4. ADVAIR (SERETIDE MITE) AEROSOLS [Concomitant]
  5. COMBIVENT [Concomitant]
  6. EFFEXOR (VENLAFAXINE HYDROCHLORIDE) CAPSULES [Concomitant]
  7. FLEXERIL [Concomitant]
  8. FUROSEMIDE [Concomitant]
  9. MOBIC [Concomitant]
  10. NEURONTIN [Concomitant]
  11. POTASSIUM CHLORIDE (POTASSIUM CHLORIDE) SOLUTION [Concomitant]
  12. PROTONIX (PANTOPRAZOLE) TABLETS [Concomitant]
  13. TRAZODONE HYDROCHLORIDE (TRAZODONE HYDROCHLORIDE) TABLETS [Concomitant]
  14. GLUCOVANCE [Concomitant]

REACTIONS (2)
  - CONFUSIONAL STATE [None]
  - DISORIENTATION [None]
